FAERS Safety Report 8183856-9 (Version None)
Quarter: 2012Q1

REPORT INFORMATION
  Report Type: 
  Country: None (occurrence: None)
  Receive Date: 20120305
  Receipt Date: 20120224
  Transmission Date: 20120608
  Serious: Yes (Other)
  Sender: FDA-Public Use
  Company Number: KR-B.I. PHARMACEUTICALS,INC./RIDGEFIELD-2012-EU-01153GD

PATIENT
  Age: 80 Year
  Sex: Female

DRUGS (4)
  1. LEVODOPA/BENSERAZIDE [Concomitant]
     Indication: PARKINSON'S DISEASE
     Dosage: 300 MG
  2. PRAMIPEXOLE DIHYCHLLORIDE [Suspect]
     Indication: PARKINSON'S DISEASE
  3. LEVODOPA/BENSERAZIDE [Concomitant]
     Dosage: 450 MG
  4. PRAMIPEXOLE DIHYCHLLORIDE [Suspect]
     Indication: RESTLESS LEGS SYNDROME
     Dosage: 1 MG

REACTIONS (3)
  - TORTICOLLIS [None]
  - NECK PAIN [None]
  - MUSCULOSKELETAL PAIN [None]
